FAERS Safety Report 4534098-7 (Version None)
Quarter: 2004Q4

REPORT INFORMATION
  Report Type: 
  Country: None (occurrence: None)
  Receive Date: 20041222
  Receipt Date: 20041211
  Transmission Date: 20050328
  Serious: Yes (Hospitalization)
  Sender: FDA-Public Use
  Company Number: JP-JNJFOC-20040900928

PATIENT
  Sex: Female
  Weight: 49 kg

DRUGS (13)
  1. REMICADE [Suspect]
     Route: 042
  2. REMICADE [Suspect]
     Route: 042
  3. REMICADE [Suspect]
     Indication: RHEUMATOID ARTHRITIS
     Route: 042
  4. RHEUMATREX [Suspect]
  5. RHEUMATREX [Suspect]
     Indication: RHEUMATOID ARTHRITIS
  6. PREDNISOLONE [Concomitant]
  7. PURSENNID [Concomitant]
     Dosage: 2 T PER DAY
  8. PURSENNID [Concomitant]
  9. LANSOPRAZOLE [Concomitant]
  10. LANSOPRAZOLE [Concomitant]
  11. HYPEN [Concomitant]
  12. ACTONEL [Concomitant]
     Dosage: 1T PER DAY
  13. CLINORIL [Concomitant]
     Dosage: 3 T PER DAY

REACTIONS (6)
  - GASTRIC ULCER [None]
  - HAEMATOCRIT DECREASED [None]
  - HAEMOGLOBIN DECREASED [None]
  - INTERSTITIAL LUNG DISEASE [None]
  - LYMPHOCYTE STIMULATION TEST POSITIVE [None]
  - PNEUMOCYSTIS CARINII PNEUMONIA [None]
